FAERS Safety Report 8877143 (Version 2)
Quarter: 2012Q4

REPORT INFORMATION
  Report Type: 
  Country: CN (occurrence: CN)
  Receive Date: 20121029
  Receipt Date: 20121107
  Transmission Date: 20130627
  Serious: Yes (Other)
  Sender: FDA-Public Use
  Company Number: CN-PFIZER INC-2012264503

PATIENT
  Age: 54 Year
  Sex: Male

DRUGS (4)
  1. VORICONAZOLE [Suspect]
     Indication: MONILIAL INFECTION
     Dosage: 0.2 g, 2x/day
     Dates: start: 201008, end: 201008
  2. VORICONAZOLE [Interacting]
     Indication: MONILIAL INFECTION
     Dosage: UNK
     Route: 048
     Dates: start: 201008, end: 201008
  3. ESOMEPRAZOLE [Interacting]
     Dosage: 20 mg, 1x/day
     Dates: start: 201008, end: 201008
  4. LAMIVUDINE [Concomitant]
     Dosage: UNK
     Dates: start: 2010, end: 201008

REACTIONS (4)
  - Potentiating drug interaction [Unknown]
  - Rhabdomyolysis [Unknown]
  - Renal failure acute [Unknown]
  - Hepatotoxicity [Unknown]
